FAERS Safety Report 13112837 (Version 1)
Quarter: 2017Q1

REPORT INFORMATION
  Report Type: Spontaneous
  Country: US (occurrence: US)
  Receive Date: 20170113
  Receipt Date: 20170113
  Transmission Date: 20170428
  Serious: Yes (Other)
  Sender: FDA-Public Use
  Company Number: PHEH2017US000928

PATIENT
  Sex: Female

DRUGS (5)
  1. HUMIRA [Suspect]
     Active Substance: ADALIMUMAB
     Indication: PSORIASIS
     Dosage: 40 MG, QW2
     Route: 058
     Dates: start: 2015, end: 2016
  2. HUMIRA [Suspect]
     Active Substance: ADALIMUMAB
     Dosage: 80 MG DAY ONE
     Route: 058
     Dates: start: 20160819, end: 20160819
  3. TEGRETOL [Suspect]
     Active Substance: CARBAMAZEPINE
     Indication: SEIZURE
     Dosage: UNK
     Route: 065
  4. HUMIRA [Suspect]
     Active Substance: ADALIMUMAB
     Dosage: 40 MG, QW2
     Route: 058
     Dates: start: 201609
  5. HUMIRA [Suspect]
     Active Substance: ADALIMUMAB
     Dosage: 40 MG DAY EIGHT
     Route: 058
     Dates: start: 20160826, end: 20160826

REACTIONS (19)
  - Headache [Unknown]
  - Skin irritation [Unknown]
  - Emotional distress [Unknown]
  - Ear infection [Unknown]
  - Injection site pain [Unknown]
  - Frustration tolerance decreased [Unknown]
  - Anger [Unknown]
  - Feeling cold [Unknown]
  - Adverse drug reaction [Unknown]
  - Pruritus [Unknown]
  - Erythema [Unknown]
  - Impaired quality of life [Unknown]
  - General physical condition abnormal [Unknown]
  - Productive cough [Unknown]
  - Respiratory tract congestion [Unknown]
  - Palpitations [Recovered/Resolved]
  - Pain [Unknown]
  - Kidney infection [Unknown]
  - Papule [Unknown]

NARRATIVE: CASE EVENT DATE: 2016
